FAERS Safety Report 6107401-4 (Version None)
Quarter: 2009Q1

REPORT INFORMATION
  Report Type: 
  Country: None (occurrence: None)
  Receive Date: 20090227
  Receipt Date: 20080527
  Transmission Date: 20090719
  Serious: Yes (Other)
  Sender: FDA-Public Use
  Company Number: RB-1543-2008

PATIENT
  Sex: Female
  Weight: 3.3 kg

DRUGS (11)
  1. SUBUTEX [Suspect]
     Indication: DRUG DEPENDENCE
     Dosage: 8 MG TRANSPLACENTAL, 12 MG TRANSPLACENTAL, 16 MG TRANSPLACENTAL, 24 MG TRANSPLACENTAL
     Route: 064
     Dates: start: 20070911, end: 20071108
  2. SUBUTEX [Suspect]
     Indication: DRUG DEPENDENCE
     Dosage: 8 MG TRANSPLACENTAL, 12 MG TRANSPLACENTAL, 16 MG TRANSPLACENTAL, 24 MG TRANSPLACENTAL
     Route: 064
     Dates: start: 20071109, end: 20080127
  3. SUBUTEX [Suspect]
     Indication: DRUG DEPENDENCE
     Dosage: 8 MG TRANSPLACENTAL, 12 MG TRANSPLACENTAL, 16 MG TRANSPLACENTAL, 24 MG TRANSPLACENTAL
     Route: 064
     Dates: start: 20080128, end: 20080207
  4. SUBUTEX [Suspect]
     Indication: DRUG DEPENDENCE
     Dosage: 8 MG TRANSPLACENTAL, 12 MG TRANSPLACENTAL, 16 MG TRANSPLACENTAL, 24 MG TRANSPLACENTAL
     Route: 064
     Dates: start: 20080208, end: 20080515
  5. FOLIC ACID [Concomitant]
  6. FLINTSTONES COMPLETE [Concomitant]
  7. VISTARIL [Concomitant]
  8. RHOGAM [Concomitant]
  9. VITAMIN TAB [Concomitant]
  10. CALCIUM [Concomitant]
  11. COLACE [Concomitant]

REACTIONS (2)
  - DRUG EXPOSURE DURING PREGNANCY [None]
  - DRUG WITHDRAWAL SYNDROME NEONATAL [None]
